FAERS Safety Report 25036154 (Version 1)
Quarter: 2025Q1

REPORT INFORMATION
  Report Type: Spontaneous
  Country: JP (occurrence: JP)
  Receive Date: 20250304
  Receipt Date: 20250304
  Transmission Date: 20250408
  Serious: Yes (Hospitalization)
  Sender: PFIZER
  Company Number: JP-PFIZER INC-PV202500023904

PATIENT
  Age: 77 Year
  Sex: Male

DRUGS (1)
  1. METHOTREXATE SODIUM [Suspect]
     Active Substance: METHOTREXATE SODIUM
     Indication: Polymyalgia rheumatica
     Dosage: 8 MG, WEEKLY
     Route: 048

REACTIONS (2)
  - Pulmonary alveolar haemorrhage [Recovering/Resolving]
  - Off label use [Unknown]
